FAERS Safety Report 15639648 (Version 3)
Quarter: 2019Q2

REPORT INFORMATION
  Report Type: Spontaneous
  Country: US (occurrence: US)
  Receive Date: 20181120
  Receipt Date: 20190516
  Transmission Date: 20190711
  Serious: No
  Sender: FDA-Public Use
  Company Number: US-PFIZER INC-2018474644

PATIENT
  Age: 57 Year
  Sex: Male

DRUGS (1)
  1. XELJANZ [Suspect]
     Active Substance: TOFACITINIB CITRATE
     Indication: RHEUMATOID ARTHRITIS
     Dosage: 5 MG, UNK
     Dates: start: 20181024

REACTIONS (9)
  - Influenza [Unknown]
  - Pain in jaw [Unknown]
  - Drug ineffective [Unknown]
  - Pain [Unknown]
  - Pain in extremity [Unknown]
  - Sinusitis [Unknown]
  - Influenza like illness [Unknown]
  - Asthenia [Unknown]
  - Neck pain [Unknown]
